FAERS Safety Report 6101036-5 (Version None)
Quarter: 2009Q1

REPORT INFORMATION
  Report Type: 
  Country: None (occurrence: None)
  Receive Date: 20090304
  Receipt Date: 20090224
  Transmission Date: 20090719
  Serious: Yes (Other)
  Sender: FDA-Public Use
  Company Number: ES-BRISTOL-MYERS SQUIBB COMPANY-14523617

PATIENT
  Age: 50 Year
  Sex: Male

DRUGS (3)
  1. DIDANOSINE [Suspect]
     Indication: HIV INFECTION
     Dates: start: 20010101, end: 20031001
  2. LAMIVUDINE [Suspect]
     Indication: HIV INFECTION
     Dates: start: 20010101, end: 20031001
  3. NEVIRAPINE [Suspect]
     Indication: HIV INFECTION
     Dates: start: 20010101, end: 20031001

REACTIONS (2)
  - ALANINE AMINOTRANSFERASE INCREASED [None]
  - DRUG RESISTANCE [None]
